FAERS Safety Report 4735203-X (Version None)
Quarter: 2005Q3

REPORT INFORMATION
  Report Type: 
  Country: None (occurrence: None)
  Receive Date: 20050804
  Receipt Date: 20050719
  Transmission Date: 20060218
  Serious: Yes (Hospitalization)
  Sender: FDA-Public Use
  Company Number: 2005001379

PATIENT
  Sex: Male

DRUGS (3)
  1. TARCEVA [Suspect]
     Indication: NON-SMALL CELL LUNG CANCER
     Dosage: 150 MG (QD), ORAL
     Route: 048
     Dates: start: 20050629, end: 20050710
  2. OMEPRAZOLE [Concomitant]
  3. SINGULAIR [Concomitant]

REACTIONS (7)
  - DIARRHOEA [None]
  - HAEMATEMESIS [None]
  - HAEMOPTYSIS [None]
  - HYPOTENSION [None]
  - OESOPHAGEAL ULCER [None]
  - PHARYNGEAL ULCERATION [None]
  - RASH PRURITIC [None]
